FAERS Safety Report 5610979-8 (Version None)
Quarter: 2008Q1

REPORT INFORMATION
  Report Type: 
  Country: None (occurrence: None)
  Receive Date: 20080201
  Receipt Date: 20080201
  Transmission Date: 20080703
  Serious: Yes (Other)
  Sender: FDA-Public Use
  Company Number: A0706848A

PATIENT
  Age: 58 Year
  Sex: Female

DRUGS (4)
  1. ALLI [Suspect]
     Indication: WEIGHT LOSS DIET
     Route: 048
     Dates: start: 20071115
  2. LEVOTHYROXINE SODIUM [Concomitant]
  3. GEMFIBROZIL [Concomitant]
  4. BONIVA [Concomitant]
     Indication: OSTEOPOROSIS PROPHYLAXIS

REACTIONS (8)
  - BLOOD GLUCOSE INCREASED [None]
  - INSOMNIA [None]
  - NAUSEA [None]
  - PNEUMONIA [None]
  - POLLAKIURIA [None]
  - RETCHING [None]
  - THIRST [None]
  - VOMITING [None]
